FAERS Safety Report 4732638-6 (Version None)
Quarter: 2005Q3

REPORT INFORMATION
  Report Type: 
  Country: None (occurrence: None)
  Receive Date: 20050802
  Receipt Date: 20050802
  Transmission Date: 20060218
  Serious: Yes (Disabling)
  Sender: FDA-Public Use
  Company Number: None

PATIENT
  Age: 82 Year
  Sex: Female

DRUGS (10)
  1. FOSAMAX [Suspect]
     Indication: BONE DENSITY DECREASED
     Dosage: SEE IMAGE
     Dates: start: 20010601
  2. FOSAMAX [Suspect]
     Indication: OSTEOPENIA
     Dosage: SEE IMAGE
     Dates: start: 20010601
  3. FOSAMAX [Suspect]
     Indication: BONE DENSITY DECREASED
     Dosage: SEE IMAGE
     Dates: start: 20050501
  4. FOSAMAX [Suspect]
     Indication: OSTEOPENIA
     Dosage: SEE IMAGE
     Dates: start: 20050501
  5. ZOCOR [Concomitant]
  6. METOPROLOL [Concomitant]
  7. LISINOPRIL [Concomitant]
  8. PREMARIN [Concomitant]
  9. LEVOTHYROXINE SODIUM [Concomitant]
  10. CELEBREX [Concomitant]

REACTIONS (1)
  - OSTEONECROSIS [None]
